FAERS Safety Report 6127777-1 (Version None)
Quarter: 2009Q1

REPORT INFORMATION
  Report Type: 
  Country: None (occurrence: None)
  Receive Date: 20090320
  Receipt Date: 20090320
  Transmission Date: 20090719
  Serious: No
  Sender: FDA-Public Use
  Company Number: None

PATIENT
  Sex: Male
  Weight: 70 kg

DRUGS (2)
  1. BUMETANIDE [Suspect]
     Indication: CARDIAC FAILURE
     Dosage: 1MG X1 IV
     Route: 042
  2. BUMETANIDE [Suspect]
     Indication: DIURETIC THERAPY
     Dosage: 1MG X1 IV
     Route: 042

REACTIONS (1)
  - INJECTION SITE IRRITATION [None]
